FAERS Safety Report 5523867-2 (Version None)
Quarter: 2007Q4

REPORT INFORMATION
  Report Type: 
  Country: None (occurrence: None)
  Receive Date: 20071121
  Receipt Date: 20071112
  Transmission Date: 20080405
  Serious: Yes (Other)
  Sender: FDA-Public Use
  Company Number: US-SHR-US-2007-029876

PATIENT
  Age: 56 Year
  Sex: Male

DRUGS (1)
  1. BETASERON [Suspect]
     Indication: RELAPSING-REMITTING MULTIPLE SCLEROSIS
     Dosage: 8 MIU, EVERY 2D
     Route: 058
     Dates: start: 19940509, end: 20070915

REACTIONS (4)
  - BONE NEOPLASM MALIGNANT [None]
  - GASTRIC CANCER [None]
  - NEOPLASM MALIGNANT [None]
  - PANCREATIC CARCINOMA [None]
